FAERS Safety Report 4656379-9 (Version None)
Quarter: 2005Q2

REPORT INFORMATION
  Report Type: 
  Country: None (occurrence: None)
  Receive Date: 20050509
  Receipt Date: 20040510
  Transmission Date: 20051028
  Serious: Yes (Hospitalization, Disabling)
  Sender: FDA-Public Use
  Company Number: US-MERCK-0405USA00669

PATIENT
  Age: 52 Year
  Sex: Male
  Weight: 102 kg

DRUGS (15)
  1. VIOXX [Suspect]
     Indication: RHEUMATOID ARTHRITIS
     Route: 048
     Dates: start: 19990101, end: 20010101
  2. CLARITIN [Concomitant]
     Route: 065
  3. HYZAAR [Concomitant]
     Indication: HYPERTENSION
     Route: 065
  4. HYZAAR [Concomitant]
     Route: 065
  5. INTERFERON (UNSPECIFIED) [Concomitant]
     Indication: HEPATITIS C
     Route: 065
  6. PHENERGAN [Concomitant]
     Route: 065
  7. OXYCONTIN [Concomitant]
     Route: 065
  8. PERCOCET [Concomitant]
     Indication: PAIN
     Route: 065
  9. VALIUM [Suspect]
     Route: 065
  10. ASPIRIN [Concomitant]
     Route: 048
  11. ALTACE [Concomitant]
     Route: 048
  12. ATENOLOL [Concomitant]
     Route: 048
  13. ZOCOR [Concomitant]
     Route: 048
  14. LORTAB [Concomitant]
     Indication: PAIN
     Route: 048
  15. NEXIUM [Concomitant]
     Route: 065

REACTIONS (42)
  - ABDOMINAL PAIN UPPER [None]
  - ACUTE MYOCARDIAL INFARCTION [None]
  - ARTHRALGIA [None]
  - BLOOD GLUCOSE INCREASED [None]
  - BLOOD TRIGLYCERIDES INCREASED [None]
  - BRONCHITIS [None]
  - CARDIAC FAILURE CONGESTIVE [None]
  - CARDIAC VALVE DISEASE [None]
  - CHEST PAIN [None]
  - CONFUSIONAL STATE [None]
  - COORDINATION ABNORMAL [None]
  - CORONARY ARTERY DISEASE [None]
  - CORONARY ARTERY REOCCLUSION [None]
  - DEPRESSED LEVEL OF CONSCIOUSNESS [None]
  - DILATATION ATRIAL [None]
  - DYSARTHRIA [None]
  - DYSPNOEA [None]
  - FALL [None]
  - FIBROMYALGIA [None]
  - GENERALISED OEDEMA [None]
  - HEPATIC STEATOSIS [None]
  - HEPATITIS C [None]
  - HEPATOSPLENOMEGALY [None]
  - HYPERTENSION [None]
  - HYPOKALAEMIA [None]
  - HYPOXIA [None]
  - INSOMNIA [None]
  - INTERVERTEBRAL DISC DISPLACEMENT [None]
  - INTERVERTEBRAL DISC PROTRUSION [None]
  - JOINT INJURY [None]
  - JOINT RANGE OF MOTION DECREASED [None]
  - MITRAL VALVE INCOMPETENCE [None]
  - MYOCARDIAL INFARCTION [None]
  - MYOCARDIAL ISCHAEMIA [None]
  - OEDEMA PERIPHERAL [None]
  - PULMONARY HYPERTENSION [None]
  - SINUS BRADYCARDIA [None]
  - SOMNOLENCE [None]
  - SYNOVITIS [None]
  - TRICUSPID VALVE INCOMPETENCE [None]
  - VENTRICULAR HYPERTROPHY [None]
  - WEIGHT INCREASED [None]
